FAERS Safety Report 4891981-0 (Version None)
Quarter: 2006Q1

REPORT INFORMATION
  Report Type: 
  Country: None (occurrence: None)
  Receive Date: 20060124
  Receipt Date: 20060124
  Transmission Date: 20060701
  Serious: Yes (Hospitalization)
  Sender: FDA-Public Use
  Company Number: None

PATIENT
  Age: 7 Year
  Sex: Female
  Weight: 24 kg

DRUGS (6)
  1. PEGASPARAGINASE 1225 UNITS [Suspect]
     Dosage: 1 DOSE 9/15/05
     Dates: start: 20050915
  2. METHOTREXATE [Concomitant]
  3. VINCRISTINE [Concomitant]
  4. CYCLOPHOSPHAMIDE [Concomitant]
  5. CYTARABINE [Concomitant]
  6. MERCAPTOPURINE [Concomitant]

REACTIONS (2)
  - PANCREATIC PSEUDOCYST [None]
  - PANCREATITIS NECROTISING [None]
